FAERS Safety Report 4920902-7 (Version None)
Quarter: 2006Q1

REPORT INFORMATION
  Report Type: 
  Country: None (occurrence: None)
  Receive Date: 20060223
  Receipt Date: 20050414
  Transmission Date: 20060701
  Serious: Yes (Hospitalization, Disabling, Other)
  Sender: FDA-Public Use
  Company Number: US-MERCK-0504USA02459

PATIENT
  Age: 45 Year
  Sex: Male

DRUGS (1)
  1. VIOXX [Suspect]
     Route: 048

REACTIONS (25)
  - ANXIETY [None]
  - ASTHENIA [None]
  - BACK PAIN [None]
  - BONE DISORDER [None]
  - BRAIN OEDEMA [None]
  - CEREBRAL ARTERY OCCLUSION [None]
  - CEREBRAL DISORDER [None]
  - CEREBROVASCULAR ACCIDENT [None]
  - HEADACHE [None]
  - IMPAIRED HEALING [None]
  - INTRACARDIAC THROMBUS [None]
  - MAJOR DEPRESSION [None]
  - MYOCARDIAL INFARCTION [None]
  - MYOCLONUS [None]
  - NECROSIS [None]
  - NEURALGIA [None]
  - PAIN IN EXTREMITY [None]
  - POST PROCEDURAL COMPLICATION [None]
  - SKIN GRAFT [None]
  - SLEEP DISORDER [None]
  - SUICIDAL IDEATION [None]
  - URINARY RETENTION [None]
  - WOUND DEHISCENCE [None]
  - WOUND DRAINAGE [None]
  - WOUND SECRETION [None]
